FAERS Safety Report 4430587-4 (Version None)
Quarter: 2004Q3

REPORT INFORMATION
  Report Type: 
  Country: None (occurrence: None)
  Receive Date: 20040818
  Receipt Date: 20040806
  Transmission Date: 20050211
  Serious: Yes (Other)
  Sender: FDA-Public Use
  Company Number: 2004053982

PATIENT
  Age: 75 Year
  Sex: Male

DRUGS (9)
  1. ZOLOFT [Suspect]
     Indication: DEPRESSION
     Dates: start: 20040401, end: 20040805
  2. ENALAPRIL [Concomitant]
  3. FUROSEMIDE [Concomitant]
  4. FLUINDIONE [Concomitant]
  5. OMEPRAZOLE [Concomitant]
  6. CLORAZEPATE DIPOTASSIUM [Concomitant]
  7. BECLOMETHASONE DIPROPIONATE [Concomitant]
  8. SALMETEROL [Concomitant]
  9. FLUTICASONE PROPIONATE [Concomitant]

REACTIONS (3)
  - CONTUSION [None]
  - DERMATITIS BULLOUS [None]
  - SUBCUTANEOUS HAEMATOMA [None]
